FAERS Safety Report 7851520-9 (Version None)
Quarter: 2011Q4

REPORT INFORMATION
  Report Type: 
  Country: None (occurrence: None)
  Receive Date: 20111026
  Receipt Date: 20111017
  Transmission Date: 20120403
  Serious: Yes (Hospitalization)
  Sender: FDA-Public Use
  Company Number: JP-ELI_LILLY_AND_COMPANY-JP201110006415

PATIENT
  Sex: Male
  Weight: 68 kg

DRUGS (6)
  1. ASPIRIN [Concomitant]
     Indication: THROMBOSIS PROPHYLAXIS
     Dosage: 100 MG, QD
     Route: 048
     Dates: start: 20111025
  2. SELBEX [Concomitant]
     Indication: GASTRITIS PROPHYLAXIS
     Dosage: 50 MG, QD, AFTER BREAKFAST
     Route: 048
     Dates: start: 20110622
  3. OLMESARTAN MEDOXOMIL [Concomitant]
     Indication: HYPERTENSION
     Route: 048
  4. LIPITOR [Concomitant]
     Indication: DYSLIPIDAEMIA
     Route: 048
  5. PRASUGREL HYDROCHLORIDE [Suspect]
     Indication: ACUTE CORONARY SYNDROME
     Dosage: 1 DF, QD
     Route: 048
     Dates: start: 20110215
  6. OMEPRAZOLE [Concomitant]
     Indication: GASTRITIS PROPHYLAXIS
     Dosage: 20 MG, DAILY, AFTER BREAKFAST
     Route: 048
     Dates: start: 20110215

REACTIONS (1)
  - IN-STENT CORONARY ARTERY RESTENOSIS [None]
